FAERS Safety Report 4527684-1 (Version None)
Quarter: 2004Q4

REPORT INFORMATION
  Report Type: 
  Country: None (occurrence: None)
  Receive Date: 20041215
  Receipt Date: 20040921
  Transmission Date: 20050328
  Serious: Yes (Death)
  Sender: FDA-Public Use
  Company Number: US-MERCK-0409USA01831

PATIENT
  Age: 73 Year
  Sex: Female
  Weight: 57 kg

DRUGS (7)
  1. VIOXX [Suspect]
     Route: 048
     Dates: start: 20030801, end: 20040826
  2. COUMADIN [Concomitant]
     Indication: ATRIAL FIBRILLATION
     Route: 048
     Dates: end: 20040826
  3. DARVOCET-N 100 [Concomitant]
     Indication: OSTEOARTHRITIS
     Route: 048
     Dates: end: 20040826
  4. ALLOPURINOL [Concomitant]
     Indication: GOUT
     Route: 048
     Dates: end: 20040826
  5. BUMEX [Concomitant]
     Indication: HYPERTENSION
     Route: 048
     Dates: end: 20040826
  6. K-DUR [Concomitant]
     Indication: HYPERTENSION
     Route: 048
     Dates: end: 20040826
  7. MEVACOR [Concomitant]
     Route: 065

REACTIONS (4)
  - CARDIAC ARREST [None]
  - CYANOSIS [None]
  - LOSS OF CONSCIOUSNESS [None]
  - SUDDEN CARDIAC DEATH [None]
